FAERS Safety Report 21528435 (Version 1)
Quarter: 2022Q4

REPORT INFORMATION
  Report Type: Spontaneous
  Country: US (occurrence: US)
  Receive Date: 20221031
  Receipt Date: 20221031
  Transmission Date: 20230112
  Serious: No
  Sender: FDA-Public Use
  Company Number: US-APOTEX-2022AP012321

PATIENT
  Age: 60 Year
  Sex: Female

DRUGS (5)
  1. RISPERIDONE [Suspect]
     Active Substance: RISPERIDONE
     Indication: Schizoaffective disorder bipolar type
     Dosage: 1 MILLIGRAM, Q.H.S.
     Route: 065
     Dates: start: 201711, end: 201711
  2. RISPERIDONE [Suspect]
     Active Substance: RISPERIDONE
     Indication: Psychotic symptom
     Dosage: UNK (INCREASED DOSE)
     Route: 065
     Dates: start: 201711, end: 2018
  3. ARIPIPRAZOLE [Suspect]
     Active Substance: ARIPIPRAZOLE
     Indication: Schizoaffective disorder bipolar type
     Dosage: 7.5 MILLIGRAM, QD
     Route: 065
     Dates: start: 201910, end: 201910
  4. ARIPIPRAZOLE [Suspect]
     Active Substance: ARIPIPRAZOLE
     Dosage: 15 MILLIGRAM, QD
     Route: 065
     Dates: start: 201910, end: 202012
  5. ARIPIPRAZOLE [Suspect]
     Active Substance: ARIPIPRAZOLE
     Dosage: 30 MILLIGRAM, QD
     Route: 065
     Dates: start: 202012, end: 202101

REACTIONS (4)
  - Lip swelling [Unknown]
  - Treatment noncompliance [Unknown]
  - Blunted affect [Unknown]
  - Weight increased [Unknown]

NARRATIVE: CASE EVENT DATE: 20180101
